FAERS Safety Report 7369146-2 (Version None)
Quarter: 2011Q1

REPORT INFORMATION
  Report Type: 
  Country: None (occurrence: None)
  Receive Date: 20110314
  Receipt Date: 20110308
  Transmission Date: 20110831
  Serious: No
  Sender: FDA-Public Use
  Company Number: A0911349A

PATIENT
  Age: 67 Year
  Sex: Female

DRUGS (3)
  1. BENZOYL PEROXIDE + SALICYLIC ACID (FORMULATION UNKNOWN) (BENZOYL PEROX [Suspect]
  2. BENZOYL PEROXIDE + SALICYLIC ACID (FORMULATION UNKNOWN) (BENZOYL PEROX [Suspect]
     Indication: PRODUCT USED FOR UNKNOWN INDICATION
     Dosage: TOPICAL
     Route: 061
     Dates: start: 20110127
  3. BENZOYL PEROXIDE + SALICYLIC ACID (FORMULATION UNKNOWN) (BENZOYL PEROX [Suspect]

REACTIONS (3)
  - SKIN IRRITATION [None]
  - SWELLING [None]
  - HYPERSENSITIVITY [None]
